FAERS Safety Report 11588551 (Version 1)
Quarter: 2015Q4

REPORT INFORMATION
  Report Type: Spontaneous
  Country: US (occurrence: None)
  Receive Date: 20151001
  Receipt Date: 20151001
  Transmission Date: 20160304
  Serious: Yes (Other)
  Sender: FDA-Public Use
  Company Number: None

PATIENT
  Age: 5 Month
  Sex: Male
  Weight: 6.8 kg

DRUGS (2)
  1. AMOXICILLIN 400 MG/5ML [Suspect]
     Active Substance: AMOXICILLIN
     Indication: EAR INFECTION
     Dosage: 3.8ML, EVERY 12 HOURS
     Route: 048
     Dates: start: 20150928, end: 20150929
  2. VITAMIN D DROPS [Concomitant]

REACTIONS (1)
  - Genital rash [None]

NARRATIVE: CASE EVENT DATE: 20150929
